FAERS Safety Report 9379451 (Version 1)
Quarter: 2013Q3

REPORT INFORMATION
  Report Type: Spontaneous
  Country: GB (occurrence: GB)
  Receive Date: 20130702
  Receipt Date: 20130702
  Transmission Date: 20140515
  Serious: Yes (Death)
  Sender: FDA-Public Use
  Company Number: GB-MYLANLABS-2013S1013871

PATIENT
  Age: 51 Year
  Sex: Female

DRUGS (9)
  1. CLOMIPRAMINE [Suspect]
     Indication: DEPRESSION
     Dates: end: 20121211
  2. AMISULPRIDE [Suspect]
     Indication: SCHIZOPHRENIA
     Dates: end: 20121211
  3. ZAPONEX [Suspect]
     Indication: SUICIDAL BEHAVIOUR
     Route: 048
     Dates: start: 20040922, end: 20121211
  4. GLICLAZIDE [Concomitant]
     Indication: DIABETES MELLITUS
     Dates: end: 20121211
  5. PROCYCLIDINE [Concomitant]
     Indication: PARKINSONISM
     Dates: end: 20121211
  6. PROCYCLIDINE [Concomitant]
     Indication: EXTRAPYRAMIDAL DISORDER
     Dates: end: 20121211
  7. RANITIDINE [Concomitant]
     Indication: PRODUCT USED FOR UNKNOWN INDICATION
     Dates: end: 20121211
  8. ZOPICLONE [Concomitant]
     Indication: ANXIETY
     Dates: end: 20121211
  9. ZOPICLONE [Concomitant]
     Indication: INSOMNIA
     Dates: end: 20121211

REACTIONS (3)
  - Circulatory collapse [Not Recovered/Not Resolved]
  - Toxicity to various agents [Fatal]
  - Head injury [Fatal]
